FAERS Safety Report 7177705-5 (Version None)
Quarter: 2010Q4

REPORT INFORMATION
  Report Type: 
  Country: None (occurrence: None)
  Receive Date: 20101220
  Receipt Date: 20101214
  Transmission Date: 20110411
  Serious: Yes (Other)
  Sender: FDA-Public Use
  Company Number: IL-US-EMD SERONO, INC.-7029103

PATIENT
  Age: 44 Year
  Sex: Female

DRUGS (3)
  1. REBIF [Suspect]
     Indication: MULTIPLE SCLEROSIS
     Route: 058
     Dates: start: 20020101, end: 20101121
  2. REBIF [Suspect]
     Route: 058
     Dates: start: 20101125
  3. FLORIS [Concomitant]
     Dates: start: 20101114

REACTIONS (4)
  - ANTIPHOSPHOLIPID SYNDROME [None]
  - INFLAMMATION [None]
  - OEDEMA PERIPHERAL [None]
  - SKIN DISCOLOURATION [None]
